FAERS Safety Report 15543058 (Version 2)
Quarter: 2019Q1

REPORT INFORMATION
  Report Type: Spontaneous
  Country: FR (occurrence: FR)
  Receive Date: 20181023
  Receipt Date: 20190213
  Transmission Date: 20190417
  Serious: Yes (Hospitalization)
  Sender: FDA-Public Use
  Company Number: FR-PFIZER INC-2018418055

PATIENT
  Age: 68 Year
  Sex: Male
  Weight: 73 kg

DRUGS (1)
  1. TOVIAZ [Suspect]
     Active Substance: FESOTERODINE FUMARATE
     Indication: POLLAKIURIA
     Dosage: UNK
     Route: 048
     Dates: start: 20180709, end: 20180817

REACTIONS (3)
  - Urinary retention [Recovering/Resolving]
  - Bladder dilatation [Unknown]
  - Urinary tract infection [Recovered/Resolved]

NARRATIVE: CASE EVENT DATE: 20180716
